FAERS Safety Report 23623132 (Version 1)
Quarter: 2024Q1

REPORT INFORMATION
  Report Type: Spontaneous
  Country: PL (occurrence: PL)
  Receive Date: 20240312
  Receipt Date: 20240312
  Transmission Date: 20240409
  Serious: Yes (Life-Threatening)
  Sender: FDA-Public Use
  Company Number: None

PATIENT
  Age: 44 Year
  Sex: Male
  Weight: 83 kg

DRUGS (1)
  1. CYRAMZA [Suspect]
     Active Substance: RAMUCIRUMAB
     Indication: Gastric cancer
     Dosage: 8 MG/KG, UNKNOWN
     Route: 042
     Dates: start: 20230720, end: 20230720

REACTIONS (6)
  - Hypersensitivity [Unknown]
  - Malaise [Unknown]
  - Dyspnoea [Unknown]
  - Erythema [Unknown]
  - Feeling cold [Unknown]
  - Chills [Unknown]
